FAERS Safety Report 11632982 (Version 1)
Quarter: 2015Q4

REPORT INFORMATION
  Report Type: Spontaneous
  Country: US (occurrence: US)
  Receive Date: 20151015
  Receipt Date: 20151015
  Transmission Date: 20160304
  Serious: Yes (Death)
  Sender: FDA-Public Use
  Company Number: US-PFIZER INC-2015335966

PATIENT
  Age: 28 Year
  Sex: Male
  Weight: 56.54 kg

DRUGS (1)
  1. INLYTA [Suspect]
     Active Substance: AXITINIB
     Indication: RENAL CANCER
     Dosage: 5 MG, 2X/DAY (5 MG TABLET EVERY 12 HRS)
     Route: 048

REACTIONS (1)
  - Death [Fatal]
